FAERS Safety Report 5946538-7 (Version None)
Quarter: 2008Q4

REPORT INFORMATION
  Report Type: 
  Country: None (occurrence: None)
  Receive Date: 20081107
  Receipt Date: 20081107
  Transmission Date: 20090506
  Serious: Yes (Life-Threatening)
  Sender: FDA-Public Use
  Company Number: None

PATIENT
  Age: 33 Year
  Sex: Male
  Weight: 80 kg

DRUGS (3)
  1. EFFEXOR XR [Suspect]
     Indication: DEPRESSION
     Dosage: 1 DAILY PO
     Route: 048
     Dates: start: 20040101, end: 20081030
  2. EFFEXOR XR [Suspect]
     Indication: FATIGUE
     Dosage: 1 DAILY PO
     Route: 048
     Dates: start: 20040101, end: 20081030
  3. EFFEXOR XR [Suspect]
     Indication: TEARFULNESS
     Dosage: 1 DAILY PO
     Route: 048
     Dates: start: 20040101, end: 20081030

REACTIONS (19)
  - ANGER [None]
  - ANOREXIA [None]
  - APATHY [None]
  - BALANCE DISORDER [None]
  - CONVULSION [None]
  - DEPRESSION [None]
  - DIARRHOEA [None]
  - DISTURBANCE IN ATTENTION [None]
  - DIZZINESS [None]
  - FATIGUE [None]
  - HEAT STROKE [None]
  - HYPERHIDROSIS [None]
  - IMPAIRED WORK ABILITY [None]
  - INSOMNIA [None]
  - JUDGEMENT IMPAIRED [None]
  - LOSS OF LIBIDO [None]
  - PARAESTHESIA [None]
  - PRURITUS [None]
  - SUICIDAL IDEATION [None]
